FAERS Safety Report 13320588 (Version 2)
Quarter: 2017Q2

REPORT INFORMATION
  Report Type: Report from Study
  Country: US (occurrence: US)
  Receive Date: 20170309
  Receipt Date: 20170518
  Transmission Date: 20170830
  Serious: Yes (Hospitalization)
  Sender: FDA-Public Use
  Company Number: US-GILEAD-2017-0261125

PATIENT
  Age: 51 Year
  Sex: Female
  Weight: 123.81 kg

DRUGS (18)
  1. AMBRISENTAN [Suspect]
     Active Substance: AMBRISENTAN
     Indication: PRODUCT USED FOR UNKNOWN INDICATION
     Dosage: 10 MG, UNK
     Route: 065
     Dates: start: 20140826
  2. CYCLOBENZAPRINE. [Concomitant]
     Active Substance: CYCLOBENZAPRINE
  3. NITROSTAT [Concomitant]
     Active Substance: NITROGLYCERIN
  4. ISOSORBIDE. [Concomitant]
     Active Substance: ISOSORBIDE
  5. OMEPRAZOLE. [Concomitant]
     Active Substance: OMEPRAZOLE
  6. SILDENAFIL. [Concomitant]
     Active Substance: SILDENAFIL
  7. SYMBICORT [Concomitant]
     Active Substance: BUDESONIDE\FORMOTEROL FUMARATE DIHYDRATE
  8. GABAPENTIN. [Concomitant]
     Active Substance: GABAPENTIN
  9. HYDROXYZINE [Concomitant]
     Active Substance: HYDROXYZINE HYDROCHLORIDE
  10. ASPIRIN                            /00002701/ [Concomitant]
     Active Substance: ASPIRIN
  11. LASIX [Concomitant]
     Active Substance: FUROSEMIDE
  12. MAGNESIUM [Concomitant]
     Active Substance: MAGNESIUM
  13. TRAMADOL. [Concomitant]
     Active Substance: TRAMADOL
  14. DONEPEZIL. [Concomitant]
     Active Substance: DONEPEZIL
  15. FLONASE                            /00908302/ [Concomitant]
     Active Substance: MOMETASONE FUROATE
  16. METFORMIN [Concomitant]
     Active Substance: METFORMIN HYDROCHLORIDE
  17. METOPROLOL. [Concomitant]
     Active Substance: METOPROLOL
  18. PROAIR HFA [Concomitant]
     Active Substance: ALBUTEROL SULFATE

REACTIONS (1)
  - Renal disorder [Recovered/Resolved]
